FAERS Safety Report 14729792 (Version 5)
Quarter: 2018Q3

REPORT INFORMATION
  Report Type: Report from Study
  Country: US (occurrence: US)
  Receive Date: 20180406
  Receipt Date: 20180724
  Transmission Date: 20181010
  Serious: Yes (Hospitalization)
  Sender: FDA-Public Use
  Company Number: US-ACTELION-A-NJ2017-161634

PATIENT
  Age: 33 Year
  Sex: Female
  Weight: 73.47 kg

DRUGS (4)
  1. SILDENAFIL. [Concomitant]
     Active Substance: SILDENAFIL
  2. LETAIRIS [Concomitant]
     Active Substance: AMBRISENTAN
  3. VELETRI [Suspect]
     Active Substance: EPOPROSTENOL
     Indication: PULMONARY ARTERIAL HYPERTENSION
     Dosage: 13.5 NG/KG, PER MIN
     Route: 042
  4. VELETRI [Suspect]
     Active Substance: EPOPROSTENOL
     Dosage: 20 NG/KG, PER MIN
     Route: 042

REACTIONS (12)
  - Swelling [Unknown]
  - Heart rate increased [Unknown]
  - Supraventricular tachycardia [Unknown]
  - Abdominal pain [Unknown]
  - Diarrhoea [Unknown]
  - Fluid retention [Unknown]
  - Dyspnoea [Recovering/Resolving]
  - Flushing [Unknown]
  - Influenza like illness [Unknown]
  - Palpitations [Unknown]
  - Pulmonary arterial hypertension [Unknown]
  - Headache [Unknown]
